FAERS Safety Report 13331496 (Version 1)
Quarter: 2017Q1

REPORT INFORMATION
  Report Type: Spontaneous
  Country: TR (occurrence: TR)
  Receive Date: 20170313
  Receipt Date: 20170313
  Transmission Date: 20170428
  Serious: Yes (Other)
  Sender: FDA-Public Use
  Company Number: TR-PURDUE PHARMA-CAN-2017-0007498

PATIENT
  Age: 23 Year
  Sex: Female

DRUGS (1)
  1. NON-PMN METHYLPHENIDATE HYDROCHLORIDE [Suspect]
     Active Substance: METHYLPHENIDATE HYDROCHLORIDE
     Indication: ATTENTION DEFICIT/HYPERACTIVITY DISORDER
     Dosage: 18 MG, DAILY
     Route: 065

REACTIONS (5)
  - Intraocular pressure increased [Unknown]
  - Optic disc disorder [Unknown]
  - Vision blurred [Unknown]
  - Optic disc haemorrhage [Unknown]
  - Open angle glaucoma [Recovering/Resolving]
